FAERS Safety Report 17637074 (Version 1)
Quarter: 2020Q2

REPORT INFORMATION
  Report Type: Spontaneous
  Country: JP (occurrence: JP)
  Receive Date: 20200407
  Receipt Date: 20200407
  Transmission Date: 20200713
  Serious: Yes (Other)
  Sender: FDA-Public Use
  Company Number: JP-PFIZER INC-2020136735

PATIENT
  Age: 57 Year
  Sex: Female

DRUGS (2)
  1. MEILAX [Suspect]
     Active Substance: ETHYL LOFLAZEPATE
     Dosage: UNK
     Route: 048
     Dates: start: 202002
  2. JZOLOFT [Suspect]
     Active Substance: SERTRALINE HYDROCHLORIDE
     Dosage: UNK
     Route: 048
     Dates: start: 202002

REACTIONS (5)
  - Nausea [Unknown]
  - Renal impairment [Unknown]
  - Glomerular filtration rate decreased [Unknown]
  - Dehydration [Unknown]
  - Neuroleptic malignant syndrome [Unknown]
